FAERS Safety Report 13618079 (Version 1)
Quarter: 2017Q2

REPORT INFORMATION
  Report Type: Spontaneous
  Country: GB (occurrence: GB)
  Receive Date: 20170606
  Receipt Date: 20170606
  Transmission Date: 20170830
  Serious: Yes (Death)
  Sender: FDA-Public Use
  Company Number: GB-ASTRAZENECA-2017SE56969

PATIENT
  Age: 81 Year
  Sex: Male

DRUGS (3)
  1. ATORVASTATIN [Concomitant]
     Active Substance: ATORVASTATIN
     Dosage: 40
  2. BRILIQUE [Suspect]
     Active Substance: TICAGRELOR
     Indication: CARDIOVASCULAR EVENT PROPHYLAXIS
     Dosage: 180
     Route: 048
     Dates: start: 201603
  3. ASPIRIN. [Concomitant]
     Active Substance: ASPIRIN
     Dosage: 75

REACTIONS (2)
  - Arteriovenous fistula site haemorrhage [Fatal]
  - Drug monitoring procedure not performed [Unknown]
